FAERS Safety Report 5692012-5 (Version None)
Quarter: 2008Q2

REPORT INFORMATION
  Report Type: 
  Country: None (occurrence: None)
  Receive Date: 20080402
  Receipt Date: 20080331
  Transmission Date: 20081010
  Serious: Yes (Hospitalization, Other)
  Sender: FDA-Public Use
  Company Number: US-MERCK-0607USA02544

PATIENT
  Age: 68 Year
  Sex: Female

DRUGS (5)
  1. FOSAMAX [Suspect]
     Indication: OSTEOPENIA
     Route: 048
     Dates: start: 20030102, end: 20041201
  2. ZOMETA [Suspect]
     Route: 065
  3. TAMOXIFEN CITRATE [Concomitant]
     Route: 065
  4. VITAMINS (UNSPECIFIED) [Concomitant]
     Route: 065
  5. CALCIUM (UNSPECIFIED) [Concomitant]
     Route: 065
     Dates: start: 20030101

REACTIONS (7)
  - INFUSION SITE INFECTION [None]
  - INTERSTITIAL LUNG DISEASE [None]
  - MALIGNANT NEOPLASM PROGRESSION [None]
  - METASTASES TO CENTRAL NERVOUS SYSTEM [None]
  - OSTEOMYELITIS [None]
  - OSTEONECROSIS [None]
  - PLEURAL EFFUSION [None]
